FAERS Safety Report 21314173 (Version 10)
Quarter: 2022Q4

REPORT INFORMATION
  Report Type: Report from Study
  Country: KR (occurrence: KR)
  Receive Date: 20220909
  Receipt Date: 20221206
  Transmission Date: 20230113
  Serious: Yes (Hospitalization, Other)
  Sender: FDA-Public Use
  Company Number: KR-ONO-2022KR024286

PATIENT
  Age: 67 Year
  Sex: Male
  Weight: 75.8 kg

DRUGS (27)
  1. IPILIMUMAB [Suspect]
     Active Substance: IPILIMUMAB
     Indication: Gastric cancer
     Dosage: MOST RECENT DOSE ON 04-JUL-2022
     Route: 065
     Dates: start: 20220517
  2. GIMERACIL\OTERACIL\TEGAFUR [Suspect]
     Active Substance: GIMERACIL\OTERACIL\TEGAFUR
     Indication: Gastric cancer
     Dosage: 50 MG/M2 FROM 04-JUL-2022?40 MG/M2 FROM 10-AUG-2022?MOST RECENT DOSE 40 MG/M2 ON 13-OCT-2022
     Route: 048
     Dates: start: 20220517
  3. OXALIPLATIN [Suspect]
     Active Substance: OXALIPLATIN
     Indication: Gastric cancer
     Dosage: 180 MG/M2 FROM 04-JUL-2022?130 MG/M2 FROM 10-AUG-2022?MOST RECENT DOSE 130 MG/M2 ON 29-SEP-2022
     Route: 065
     Dates: start: 20220517
  4. LOPERAMIDE [Concomitant]
     Active Substance: LOPERAMIDE
     Indication: Diarrhoea
     Route: 065
     Dates: start: 20220628, end: 20221020
  5. FENTANYL [Concomitant]
     Active Substance: FENTANYL
     Indication: Abdominal pain
     Dosage: 1 DF= 12 UNK
     Route: 062
     Dates: start: 20220704, end: 20220908
  6. ATENOLOL [Concomitant]
     Active Substance: ATENOLOL
     Indication: Hypertension
     Route: 065
  7. ATORVASTATIN CALCIUM [Concomitant]
     Active Substance: ATORVASTATIN CALCIUM
     Indication: Hypertension
     Route: 065
     Dates: end: 20221031
  8. PHOSTEN [Concomitant]
     Indication: Product used for unknown indication
     Dosage: UNK
     Route: 065
  9. Xigduo XR 10/500 [Concomitant]
     Indication: Product used for unknown indication
     Dosage: UNK
     Route: 065
  10. 5% Egafusin [Concomitant]
     Indication: Product used for unknown indication
     Dosage: UNK
     Route: 065
  11. ATIVAN [Concomitant]
     Active Substance: LORAZEPAM
     Indication: Product used for unknown indication
     Dosage: UNK
     Route: 065
  12. DILID [Concomitant]
     Indication: Abdominal pain
     Dosage: 2MG/TAB 1TAB BID PRN, ONGOING
     Route: 065
     Dates: start: 20220628
  13. LANSOPRAZOLE [Concomitant]
     Active Substance: LANSOPRAZOLE
     Indication: Product used for unknown indication
     Dosage: UNK
     Route: 065
  14. PENIRAMIN [Concomitant]
     Indication: Product used for unknown indication
     Dosage: UNK
     Route: 065
  15. METOCLOPRAMIDE HYDROCHLORIDE [Concomitant]
     Active Substance: METOCLOPRAMIDE HYDROCHLORIDE
     Indication: Product used for unknown indication
     Dosage: UNK
     Route: 065
  16. DAPAGLIFLOZIN [Concomitant]
     Active Substance: DAPAGLIFLOZIN
     Indication: Diabetes mellitus
     Route: 048
     Dates: start: 20220902, end: 20220905
  17. HUMULIN R [Concomitant]
     Active Substance: INSULIN HUMAN
     Indication: Diabetes mellitus
     Dosage: 1000IU/VIAL 0.004VIAL
     Route: 058
     Dates: start: 20220902, end: 20220904
  18. CALCIUM GLUCONATE [Concomitant]
     Active Substance: CALCIUM GLUCONATE
     Indication: Product used for unknown indication
     Route: 065
     Dates: start: 20220613, end: 20220613
  19. BARACLUDE [Concomitant]
     Active Substance: ENTECAVIR
     Indication: Product used for unknown indication
     Route: 065
     Dates: start: 20220725, end: 20220728
  20. MORPHINE SULFATE [Concomitant]
     Active Substance: MORPHINE SULFATE
     Indication: Product used for unknown indication
     Route: 065
     Dates: start: 20221031, end: 20221031
  21. MORPHINE SULFATE [Concomitant]
     Active Substance: MORPHINE SULFATE
     Route: 065
     Dates: start: 20221110, end: 20221110
  22. LASIX [Concomitant]
     Active Substance: FUROSEMIDE
     Indication: Product used for unknown indication
     Route: 065
     Dates: start: 20221026, end: 20221026
  23. ADALAT [Concomitant]
     Active Substance: NIFEDIPINE
     Indication: Product used for unknown indication
     Route: 065
     Dates: start: 20221024, end: 20221026
  24. ULTRACET [Concomitant]
     Active Substance: ACETAMINOPHEN\TRAMADOL HYDROCHLORIDE
     Indication: Product used for unknown indication
     Dosage: DOSE= 2 DF
     Route: 065
     Dates: start: 20221021
  25. PIPERACILLIN SODIUM\TAZOBACTAM SODIUM [Concomitant]
     Active Substance: PIPERACILLIN SODIUM\TAZOBACTAM SODIUM
     Indication: Product used for unknown indication
     Route: 065
     Dates: start: 20221021, end: 20221031
  26. PIPERACILLIN SODIUM\TAZOBACTAM SODIUM [Concomitant]
     Active Substance: PIPERACILLIN SODIUM\TAZOBACTAM SODIUM
     Route: 065
     Dates: start: 20221111, end: 20221115
  27. ASPIRIN [Concomitant]
     Active Substance: ASPIRIN
     Indication: Product used for unknown indication
     Route: 065
     Dates: start: 20221021, end: 20221031

REACTIONS (3)
  - Hepatic infection [Recovered/Resolved]
  - Immune-mediated hepatitis [Recovered/Resolved]
  - Blood bilirubin increased [Recovered/Resolved]

NARRATIVE: CASE EVENT DATE: 20220831
